FAERS Safety Report 5245777-0 (Version None)
Quarter: 2007Q1

REPORT INFORMATION
  Report Type: 
  Country: None (occurrence: None)
  Receive Date: 20070223
  Receipt Date: 20070215
  Transmission Date: 20070707
  Serious: Yes (Other)
  Sender: FDA-Public Use
  Company Number: US-PFIZER INC-2007013100

PATIENT
  Sex: Female
  Weight: 61.2 kg

DRUGS (3)
  1. PROCARDIA XL [Suspect]
     Indication: HYPERTENSION
  2. PROCARDIA XL [Suspect]
     Indication: DYSPNOEA
  3. COZAAR [Concomitant]

REACTIONS (4)
  - BLOOD PRESSURE INADEQUATELY CONTROLLED [None]
  - HYSTERECTOMY [None]
  - MEAN CELL HAEMOGLOBIN [None]
  - PLATELET COUNT DECREASED [None]
